FAERS Safety Report 10380655 (Version 1)
Quarter: 2014Q1

REPORT INFORMATION
  Report Type: Spontaneous
  Country: US (occurrence: None)
  Receive Date: 20140306
  Receipt Date: 20140306
  Transmission Date: 20141002
  Serious: Yes (Other)
  Sender: FDA-Public Use
  Company Number: 163-21880-13053334

PATIENT
  Age: 68 Year
  Sex: Male

DRUGS (19)
  1. REVLIMID (LENALIDOMIDE) (10 MILLIGRAM, CAPSULES) [Suspect]
     Indication: PLASMA CELL MYELOMA
     Route: 048
     Dates: start: 20110503
  2. HUMALOG 9INSULIN LISPO) [Concomitant]
  3. MULTIVITAMINS (MULTIVITAMINS) [Concomitant]
  4. LOSARTAN/HCTZ (HYZAAR) [Concomitant]
  5. LIPITOR (ATORVASTATIN) [Concomitant]
  6. NEURONTIN (GABAPENTIN) [Concomitant]
  7. SYNTHROID (LEVOTHYROXINE SODIUM) [Concomitant]
  8. LANTUS (INSULIN GLARGINE) [Concomitant]
  9. MINOCYCLINE HCL (MINOCYCLINE HYDROCHLORIDE) [Concomitant]
  10. ASPIRIN (ACETYLSALICYLIC ACID) [Concomitant]
  11. VITAMIN B12 (CYANOCOBALAMIN) [Concomitant]
  12. FISH OIL (FISH OIL) [Concomitant]
  13. VITAMIN D3 (COLECALCIFEROL) [Concomitant]
  14. AMLODIPINE BESYLATE (AMLODIPINE BESILATE) [Concomitant]
  15. LOSARTAN (LOSARTAN) [Concomitant]
  16. GABAPENTIN (GABAPENTIN) [Concomitant]
  17. BABY ASPIRIN (ACETYLSALICYLIC ACID) [Concomitant]
  18. ALLOPURINOL (ALLOPURINOL) [Concomitant]
  19. ATORVASTATIN (ATORVASTATIN) [Concomitant]

REACTIONS (9)
  - Increased upper airway secretion [None]
  - Fatigue [None]
  - Pulmonary congestion [None]
  - Peripheral coldness [None]
  - Wound haemorrhage [None]
  - Increased tendency to bruise [None]
  - Laceration [None]
  - Cough [None]
  - Dyspnoea [None]
